FAERS Safety Report 8619935-9 (Version None)
Quarter: 2012Q3

REPORT INFORMATION
  Report Type: 
  Country: None (occurrence: None)
  Receive Date: 20120817
  Receipt Date: 20120817
  Transmission Date: 20120928
  Serious: No
  Sender: FDA-Public Use
  Company Number: None

PATIENT
  Sex: Male

DRUGS (1)
  1. AVONEX [Suspect]
     Indication: MULTIPLE SCLEROSIS
     Dosage: 30 MCG Q WEEK INTRAMUSCULAR
     Route: 030
     Dates: start: 20111213, end: 20120801

REACTIONS (1)
  - DRUG INEFFECTIVE [None]
